FAERS Safety Report 7833723-2 (Version None)
Quarter: 2011Q4

REPORT INFORMATION
  Report Type: 
  Country: None (occurrence: None)
  Receive Date: 20111024
  Receipt Date: 20111011
  Transmission Date: 20120403
  Serious: Yes (Hospitalization, Other)
  Sender: FDA-Public Use
  Company Number: US-BAYER-2011-082014

PATIENT
  Sex: Female
  Weight: 56.689 kg

DRUGS (2)
  1. ANTIBIOTICS [Concomitant]
  2. YASMIN [Suspect]
     Dosage: UNK
     Dates: start: 20030101, end: 20050101

REACTIONS (8)
  - CONVULSION [None]
  - DEEP VEIN THROMBOSIS [None]
  - PANCREATITIS ACUTE [None]
  - GALLBLADDER INJURY [None]
  - AMENORRHOEA [None]
  - PANCREATITIS NECROTISING [None]
  - PORTAL VEIN THROMBOSIS [None]
  - INJURY [None]
